FAERS Safety Report 6662568-4 (Version None)
Quarter: 2010Q1

REPORT INFORMATION
  Report Type: 
  Country: None (occurrence: None)
  Receive Date: 20100329
  Receipt Date: 20100316
  Transmission Date: 20100710
  Serious: Yes (Life-Threatening, Hospitalization)
  Sender: FDA-Public Use
  Company Number: CIP10000437

PATIENT
  Age: 83 Year
  Sex: Female

DRUGS (13)
  1. ACTONEL [Suspect]
     Indication: OSTEOPOROSIS
     Dosage: 17.5 MG ONCE WEEKLY, ORAL
     Route: 048
     Dates: start: 20080920, end: 20100223
  2. CALCIUM +D3 (CALCIUM, COLECALCIFEROL) [Suspect]
     Dosage: ONE DOSE ONLY, ORAL
     Route: 048
     Dates: start: 20100222
  3. LASIX [Concomitant]
  4. GOSHAKUSAN (HERBAL EXTRACT NOS) [Concomitant]
  5. GOREI-SAN (HERBAL EXTRACT NOS) [Concomitant]
  6. BUFFERIN [Concomitant]
  7. MUCOSTA (REBAMIPIDE) [Concomitant]
  8. OLOPATADINE HYDROCHLORIDE [Concomitant]
  9. DOGMATYL (SULPIRIDE) [Concomitant]
  10. RABEPRAZOLE SODIUM [Concomitant]
  11. JUVELA N (TOCOPHERYL NICOTINATE) [Concomitant]
  12. ALDACTONE [Concomitant]
  13. ALL OTHER THERAPEUTIC PRODUCTS [Concomitant]

REACTIONS (3)
  - DRUG INTERACTION [None]
  - OXYGEN SATURATION DECREASED [None]
  - RENAL FAILURE ACUTE [None]
